FAERS Safety Report 6985704-9 (Version None)
Quarter: 2010Q3

REPORT INFORMATION
  Report Type: 
  Country: None (occurrence: None)
  Receive Date: 20100915
  Receipt Date: 20100823
  Transmission Date: 20110219
  Serious: No
  Sender: FDA-Public Use
  Company Number: US-BAYER-201027163NA

PATIENT
  Age: 37 Year
  Sex: Male

DRUGS (1)
  1. ULTRAVIST 300 [Suspect]
     Indication: PRODUCT USED FOR UNKNOWN INDICATION
     Dosage: RIGHT ANTECUBITAL FOREARM USING POWER INJECTOR
     Route: 042
     Dates: start: 20100624, end: 20100624

REACTIONS (1)
  - URTICARIA [None]
